FAERS Safety Report 14380385 (Version 1)
Quarter: 2018Q1

REPORT INFORMATION
  Report Type: Spontaneous
  Country: CN (occurrence: CN)
  Receive Date: 20180112
  Receipt Date: 20180112
  Transmission Date: 20180509
  Serious: Yes (Hospitalization)
  Sender: FDA-Public Use
  Company Number: CN-PFIZER INC-2018015426

PATIENT
  Age: 40 Year
  Sex: Female

DRUGS (5)
  1. MEPEM [Suspect]
     Active Substance: MEROPENEM
     Indication: THERAPEUTIC PROCEDURE
     Dosage: 1 G, 2X/DAY (Q12H)
     Route: 041
     Dates: start: 20171018, end: 20171018
  2. VANCOCIN [Suspect]
     Active Substance: VANCOMYCIN HYDROCHLORIDE
     Indication: THERAPEUTIC PROCEDURE
     Dosage: 500 MG, 2X/DAY (Q12H)
     Route: 041
     Dates: start: 20171018, end: 20171018
  3. MINIRIN [Suspect]
     Active Substance: DESMOPRESSIN ACETATE
     Indication: THERAPEUTIC PROCEDURE
     Dosage: 0.1 MG, 2X/DAY (BID)
     Route: 048
     Dates: start: 20171018, end: 20171019
  4. MEPEM [Suspect]
     Active Substance: MEROPENEM
     Dosage: 2G, BID
     Route: 041
     Dates: start: 20171019, end: 20171019
  5. VANCOCIN [Suspect]
     Active Substance: VANCOMYCIN HYDROCHLORIDE
     Dosage: 500 MG, 4X/DAY (Q6H)
     Route: 041
     Dates: start: 20171019, end: 20171019

REACTIONS (1)
  - Acute kidney injury [Recovering/Resolving]

NARRATIVE: CASE EVENT DATE: 20171019
